FAERS Safety Report 24402672 (Version 1)
Quarter: 2024Q4

REPORT INFORMATION
  Report Type: Spontaneous
  Country: ES (occurrence: ES)
  Receive Date: 20241007
  Receipt Date: 20241007
  Transmission Date: 20250114
  Serious: Yes (Hospitalization)
  Sender: AUROBINDO
  Company Number: ES-AEMPS-1573852

PATIENT
  Age: 76 Year
  Sex: Female

DRUGS (2)
  1. BISOPROLOL FUMARATE [Interacting]
     Active Substance: BISOPROLOL FUMARATE
     Indication: Atrial fibrillation
     Dosage: 5 MILLIGRAM, ONCE A DAY
     Route: 048
     Dates: start: 20220630
  2. DIGOXIN [Interacting]
     Active Substance: DIGOXIN
     Indication: Atrial fibrillation
     Dosage: 1 TABLET OF 0.25MG EVERY 24H ORALLY
     Route: 048
     Dates: start: 20220802, end: 20230310

REACTIONS (2)
  - Bradycardia [Recovered/Resolved]
  - Toxicity to various agents [Recovered/Resolved]

NARRATIVE: CASE EVENT DATE: 20230310
